FAERS Safety Report 6906488-6 (Version None)
Quarter: 2010Q3

REPORT INFORMATION
  Report Type: 
  Country: None (occurrence: None)
  Receive Date: 20100804
  Receipt Date: 20100802
  Transmission Date: 20110219
  Serious: Yes (Hospitalization)
  Sender: FDA-Public Use
  Company Number: FR-PFIZER INC-2010097652

PATIENT
  Age: 67 Year
  Sex: Male

DRUGS (8)
  1. SOLU-MEDROL [Suspect]
     Indication: HODGKIN'S DISEASE
     Dosage: 125 MG/M2,  PER DAY
     Route: 042
     Dates: start: 20060517, end: 20061101
  2. BLEOMYCIN SULFATE [Suspect]
     Dosage: 10 MG/MA? PER DAY
     Route: 042
     Dates: start: 20060517, end: 20060901
  3. DOXORUBICIN HCL [Suspect]
     Dosage: 25 MG/MA? PER DAY
     Route: 042
     Dates: start: 20060517, end: 20061101
  4. VELBE [Suspect]
     Indication: HODGKIN'S DISEASE
     Dosage: UNK
     Route: 042
     Dates: start: 20060517, end: 20061101
  5. DETICENE [Suspect]
     Indication: HODGKIN'S DISEASE
     Dosage: UNK
     Route: 042
     Dates: start: 20060517, end: 20061101
  6. SINTROM [Concomitant]
  7. CORTANCYL [Concomitant]
     Dosage: 60 MG PER DAY
  8. OMEPRAZOLE [Concomitant]
     Dosage: 20 MG PER DAY

REACTIONS (2)
  - INTERSTITIAL LUNG DISEASE [None]
  - PULMONARY FIBROSIS [None]
